FAERS Safety Report 15598711 (Version 6)
Quarter: 2019Q1

REPORT INFORMATION
  Report Type: Report from Study
  Country: BR (occurrence: BR)
  Receive Date: 20181108
  Receipt Date: 20190321
  Transmission Date: 20190417
  Serious: Yes (Hospitalization)
  Sender: FDA-Public Use
  Company Number: BR-ROCHE-2188100

PATIENT
  Age: 46 Year
  Sex: Female
  Weight: 97.2 kg

DRUGS (9)
  1. ATEZOLIZUMAB. [Suspect]
     Active Substance: ATEZOLIZUMAB
     Indication: MALIGNANT MELANOMA
     Dosage: ON DAY 1 OF EACH 21 DAY CYCLE.?MOST RECENT DOSE OF ATEZOLIZUMAB: 31/AUG/2018 AT 13:10
     Route: 042
     Dates: start: 20180719
  2. PHYSIOLOGICAL SALINE [Concomitant]
     Route: 042
     Dates: start: 20180920, end: 20180920
  3. FLUOXETINE [Concomitant]
     Active Substance: FLUOXETINE HYDROCHLORIDE
     Indication: DEPRESSION
     Route: 048
     Dates: start: 20010101
  4. HYDROCHLOROTHIAZIDE. [Concomitant]
     Active Substance: HYDROCHLOROTHIAZIDE
     Indication: HYPERTENSION
     Route: 048
     Dates: start: 20010101
  5. SIMVASTATIN. [Concomitant]
     Active Substance: SIMVASTATIN
     Indication: DYSLIPIDAEMIA
     Route: 048
     Dates: start: 20150101
  6. LOSARTAN. [Concomitant]
     Active Substance: LOSARTAN
     Indication: HYPERTENSION
     Route: 048
     Dates: start: 20010101
  7. PHYSIOLOGICAL SALINE [Concomitant]
     Route: 042
     Dates: start: 20180921, end: 20180928
  8. METFORMIN [Concomitant]
     Active Substance: METFORMIN HYDROCHLORIDE
     Indication: DIABETES MELLITUS
     Route: 048
     Dates: start: 20080101
  9. PHYSIOLOGICAL SALINE [Concomitant]
     Route: 042
     Dates: start: 20180920, end: 20180921

REACTIONS (1)
  - Pleurisy [Recovered/Resolved]

NARRATIVE: CASE EVENT DATE: 20180915
